FAERS Safety Report 18120975 (Version 2)
Quarter: 2020Q3

REPORT INFORMATION
  Report Type: Spontaneous
  Country: DE (occurrence: DE)
  Receive Date: 20200806
  Receipt Date: 20200807
  Transmission Date: 20201103
  Serious: Yes (Hospitalization, Other)
  Sender: FDA-Public Use
  Company Number: DE-JNJFOC-20200800208

PATIENT
  Age: 42 Year
  Sex: Male

DRUGS (2)
  1. PREGABALIN. [Concomitant]
     Active Substance: PREGABALIN
     Indication: PAIN
     Route: 065
  2. DUROGESIC SMAT [Suspect]
     Active Substance: FENTANYL
     Indication: PRODUCT USED FOR UNKNOWN INDICATION
     Route: 048

REACTIONS (12)
  - Traumatic haematoma [Recovered/Resolved]
  - Rhabdomyolysis [Recovered/Resolved]
  - Fall [Recovered/Resolved]
  - Acute kidney injury [Recovered/Resolved]
  - Injury [Recovered/Resolved]
  - Immobile [Recovered/Resolved]
  - Loss of consciousness [Recovered/Resolved]
  - Compartment syndrome [Recovered/Resolved]
  - Drug abuse [Unknown]
  - Dizziness [Recovered/Resolved]
  - Sciatic nerve palsy [Recovered/Resolved]
  - Intentional product use issue [Unknown]
